FAERS Safety Report 5296449-8 (Version None)
Quarter: 2007Q2

REPORT INFORMATION
  Report Type: 
  Country: None (occurrence: None)
  Receive Date: 20070413
  Receipt Date: 20070312
  Transmission Date: 20071010
  Serious: Yes (Disabling)
  Sender: FDA-Public Use
  Company Number: US-SANOFI-SYNTHELABO-A03200702559

PATIENT
  Sex: Female

DRUGS (2)
  1. PROZAC [Concomitant]
     Indication: DRUG USE FOR UNKNOWN INDICATION
     Route: 065
  2. AMBIEN [Suspect]
     Indication: INSOMNIA
     Dosage: 1/2 TABLET TO 1 TABLET 30 MINUTES PRIOR TO BEDTIME
     Route: 048
     Dates: start: 20020201, end: 20060318

REACTIONS (9)
  - ABNORMAL BEHAVIOUR [None]
  - AMNESIA [None]
  - DEPRESSION [None]
  - DRUG DEPENDENCE [None]
  - EATING DISORDER [None]
  - PAIN [None]
  - SLEEP TALKING [None]
  - SLEEP WALKING [None]
  - WEIGHT INCREASED [None]
